FAERS Safety Report 8020064-6 (Version None)
Quarter: 2012Q1

REPORT INFORMATION
  Report Type: 
  Country: None (occurrence: None)
  Receive Date: 20120103
  Receipt Date: 20111228
  Transmission Date: 20120608
  Serious: Yes (Hospitalization)
  Sender: FDA-Public Use
  Company Number: JP-CEPHALON-2011004731

PATIENT
  Age: 70 Year
  Sex: Male

DRUGS (1)
  1. BENDAMUSTINE HCL [Suspect]
     Indication: MANTLE CELL LYMPHOMA
     Route: 042
     Dates: start: 20110315

REACTIONS (2)
  - DISSEMINATED INTRAVASCULAR COAGULATION [None]
  - DECREASED APPETITE [None]
